FAERS Safety Report 19565735 (Version 1)
Quarter: 2021Q3

REPORT INFORMATION
  Report Type: Spontaneous
  Country: None (occurrence: BE)
  Receive Date: 20210714
  Receipt Date: 20210714
  Transmission Date: 20211014
  Serious: Yes (Other)
  Sender: FDA-Public Use
  Company Number: BE-VALIDUS PHARMACEUTICALS LLC-BE-VDP-2021-000069

PATIENT
  Age: 29 Year
  Sex: Female

DRUGS (16)
  1. CALCIUM CARBONATE. [Suspect]
     Active Substance: CALCIUM CARBONATE
     Indication: HYPOCALCAEMIA
     Dosage: 5 GRAM, QD
     Route: 065
  2. 1?ALPHA [Suspect]
     Active Substance: ALFACALCIDOL
     Dosage: 17 MICROGRAM, QD
     Route: 065
  3. L?THYROXINE [LEVOTHYROXINE] [Suspect]
     Active Substance: LEVOTHYROXINE
     Indication: HYPOCALCAEMIA
     Dosage: 137.5 MICROGRAM, QD
     Route: 065
  4. L?THYROXINE [LEVOTHYROXINE] [Suspect]
     Active Substance: LEVOTHYROXINE
     Dosage: 150 MICROGRAM, QD
     Route: 065
  5. D?CURE [Suspect]
     Active Substance: CHOLECALCIFEROL
     Indication: VITAMIN SUPPLEMENTATION
     Dosage: 25000 INTERNATIONAL UNIT, Q3WK
     Route: 065
  6. CALCITRIOL. [Suspect]
     Active Substance: CALCITRIOL
     Indication: HYPOCALCAEMIA
     Dosage: UNK
     Route: 065
  7. L?THYROXINE [LEVOTHYROXINE] [Suspect]
     Active Substance: LEVOTHYROXINE
     Dosage: 112.5 MICROGRAM, QD
     Route: 065
  8. 1?ALPHA [Suspect]
     Active Substance: ALFACALCIDOL
     Dosage: 15 MICROGRAM, QD
     Route: 065
  9. CALCIUM CARBONATE. [Suspect]
     Active Substance: CALCIUM CARBONATE
     Dosage: 3 GRAM, QD
     Route: 065
  10. L?THYROXINE [LEVOTHYROXINE] [Suspect]
     Active Substance: LEVOTHYROXINE
     Dosage: 125 MICROGRAM, QD
     Route: 065
  11. L?THYROXINE [LEVOTHYROXINE] [Suspect]
     Active Substance: LEVOTHYROXINE
     Dosage: 100 MICROGRAM, QD
     Route: 065
  12. 1?ALPHA [Suspect]
     Active Substance: ALFACALCIDOL
     Dosage: 4 MICROGRAM, QD
     Route: 065
  13. 1?ALPHA [Suspect]
     Active Substance: ALFACALCIDOL
     Dosage: 14 MICROGRAM, QD
     Route: 065
  14. CALCIUM GLUCONATE. [Suspect]
     Active Substance: CALCIUM GLUCONATE
     Indication: HYPOCALCAEMIA
     Dosage: 12 GRAM, QD
     Route: 065
  15. 1?ALPHA [Suspect]
     Active Substance: ALFACALCIDOL
     Indication: HYPOCALCAEMIA
     Dosage: 20 MICROGRAM, QD
     Route: 065
  16. 1?ALPHA [Suspect]
     Active Substance: ALFACALCIDOL
     Dosage: 16 MICROGRAM, QD
     Route: 065

REACTIONS (10)
  - Hypoparathyroidism [Unknown]
  - Hypoaesthesia [Unknown]
  - Malaise [Unknown]
  - Maternal exposure during pregnancy [Unknown]
  - Fatigue [Unknown]
  - Vomiting [Unknown]
  - Muscle spasms [Unknown]
  - Myalgia [Unknown]
  - Diarrhoea [Unknown]
  - Premature labour [Unknown]

NARRATIVE: CASE EVENT DATE: 20170213
